FAERS Safety Report 15884450 (Version 5)
Quarter: 2019Q3

REPORT INFORMATION
  Report Type: Report from Study
  Country: JP (occurrence: JP)
  Receive Date: 20190129
  Receipt Date: 20190912
  Transmission Date: 20191004
  Serious: No
  Sender: FDA-Public Use
  Company Number: JP-PFIZER INC-2019032055

PATIENT
  Age: 46 Year
  Sex: Female

DRUGS (1)
  1. LORLATINIB [Suspect]
     Active Substance: LORLATINIB
     Dosage: 100 MG, DAILY
     Route: 048
     Dates: start: 20181206, end: 20190220

REACTIONS (11)
  - Affective disorder [Recovered/Resolved]
  - Crying [Recovered/Resolved]
  - Altered state of consciousness [Recovered/Resolved]
  - Agitation [Recovered/Resolved]
  - Myalgia [Recovered/Resolved]
  - Affect lability [Recovered/Resolved]
  - Vomiting [Recovered/Resolved]
  - Hyperlipidaemia [Unknown]
  - Haematuria [Unknown]
  - Lung disorder [Unknown]
  - Disturbance in attention [Recovered/Resolved]

NARRATIVE: CASE EVENT DATE: 20190124
